FAERS Safety Report 16372350 (Version 1)
Quarter: 2019Q2

REPORT INFORMATION
  Report Type: Spontaneous
  Country: US (occurrence: US)
  Receive Date: 20190424
  Receipt Date: 20190424
  Transmission Date: 20190711
  Serious: Yes (Life-Threatening)
  Sender: FDA-Public Use
  Company Number: None

PATIENT
  Age: 43 Year
  Sex: Female
  Weight: 51.71 kg

DRUGS (1)
  1. ESKETAMINE [Suspect]
     Active Substance: ESKETAMINE
     Indication: PRODUCT DOSAGE FORM ISSUE
     Route: 048
     Dates: start: 20180220, end: 20180220

REACTIONS (7)
  - Emotional distress [None]
  - Palpitations [None]
  - Victim of crime [None]
  - Pain [None]
  - Product use in unapproved indication [None]
  - Depressed level of consciousness [None]
  - Immobile [None]

NARRATIVE: CASE EVENT DATE: 20180220
